FAERS Safety Report 25941826 (Version 4)
Quarter: 2025Q4

REPORT INFORMATION
  Report Type: Spontaneous
  Country: CA (occurrence: CA)
  Receive Date: 20251020
  Receipt Date: 20251203
  Transmission Date: 20260118
  Serious: Yes (Other)
  Sender: PFIZER
  Company Number: CA-PFIZER INC-202500168268

PATIENT
  Age: 30 Year
  Sex: Female
  Weight: 105 kg

DRUGS (10)
  1. IXIFI [Suspect]
     Active Substance: INFLIXIMAB-QBTX
     Indication: Colitis ulcerative
     Dosage: 500 MG, EVERY 4 WEEKS
     Route: 042
     Dates: start: 20250723
  2. IXIFI [Suspect]
     Active Substance: INFLIXIMAB-QBTX
     Dosage: 500 MG, EVERY 4 WEEKS
     Route: 042
     Dates: start: 20250820, end: 20250820
  3. IXIFI [Suspect]
     Active Substance: INFLIXIMAB-QBTX
     Dosage: 500 MG, 5 WEEKS AND 5 DAYS (PRESCRIBED TREATMENTS WAS EVERY 4 WEEKS)
     Route: 042
     Dates: start: 20250929
  4. IXIFI [Suspect]
     Active Substance: INFLIXIMAB-QBTX
     Dosage: 500 MG, AFTER 8 WEEKS AND 1 DAY, (500 MG EVERY 4 WEEKS)
     Route: 042
     Dates: start: 20251125
  5. AVENTYL [Concomitant]
     Active Substance: NORTRIPTYLINE HYDROCHLORIDE
     Dosage: UNK
  6. AZATHIOPRINE [Concomitant]
     Active Substance: AZATHIOPRINE
     Dosage: UNK
  7. CIPRALEX [Concomitant]
     Active Substance: ESCITALOPRAM OXALATE
     Dosage: UNK
  8. DIMENHYDRINATE [Concomitant]
     Active Substance: DIMENHYDRINATE
     Indication: Premedication
     Dosage: UNK
     Dates: start: 20251125, end: 20251125
  9. PREDNISONE [Concomitant]
     Active Substance: PREDNISONE
     Dosage: UNK
  10. ZOPICLONE [Concomitant]
     Active Substance: ZOPICLONE
     Dosage: UNK

REACTIONS (7)
  - Pulmonary oedema [Recovering/Resolving]
  - Chest discomfort [Recovering/Resolving]
  - Cough [Recovering/Resolving]
  - Dyspnoea [Unknown]
  - Chest discomfort [Recovered/Resolved]
  - Nausea [Recovered/Resolved]
  - Off label use [Unknown]

NARRATIVE: CASE EVENT DATE: 20250820
